FAERS Safety Report 8005450-2 (Version None)
Quarter: 2011Q4

REPORT INFORMATION
  Report Type: 
  Country: None (occurrence: None)
  Receive Date: 20111223
  Receipt Date: 20111216
  Transmission Date: 20120403
  Serious: Yes (Other)
  Sender: FDA-Public Use
  Company Number: US-JNJFOC-20111207586

PATIENT
  Sex: Female

DRUGS (2)
  1. REMICADE [Suspect]
     Indication: CROHN'S DISEASE
     Route: 042
     Dates: start: 20111201
  2. REMICADE [Suspect]
     Route: 042
     Dates: start: 20111014

REACTIONS (8)
  - DIARRHOEA [None]
  - HEADACHE [None]
  - EYE PRURITUS [None]
  - PRESYNCOPE [None]
  - ABDOMINAL DISCOMFORT [None]
  - PARAESTHESIA [None]
  - CONTUSION [None]
  - TOOTHACHE [None]
